FAERS Safety Report 8151704-9 (Version None)
Quarter: 2012Q1

REPORT INFORMATION
  Report Type: 
  Country: None (occurrence: None)
  Receive Date: 20120221
  Receipt Date: 20120207
  Transmission Date: 20120608
  Serious: Yes (Other)
  Sender: FDA-Public Use
  Company Number: FR-AMGEN-FRASP2012009367

PATIENT
  Age: 49 Year
  Sex: Female

DRUGS (1)
  1. ETANERCEPT [Suspect]
     Indication: RHEUMATOID ARTHRITIS
     Dosage: UNK
     Route: 065

REACTIONS (5)
  - LUNG INFILTRATION [None]
  - DYSPNOEA [None]
  - COUGH [None]
  - GRANULOMA [None]
  - HILAR LYMPHADENOPATHY [None]
